FAERS Safety Report 9163208 (Version 1)
Quarter: 2013Q1

REPORT INFORMATION
  Report Type: Spontaneous
  Country: ES (occurrence: None)
  Receive Date: 20130221
  Receipt Date: 20130221
  Transmission Date: 20140127
  Serious: Yes (Other)
  Sender: FDA-Public Use
  Company Number: 2013AP003183

PATIENT
  Age: 76 Year
  Sex: 0

DRUGS (3)
  1. ENALAPRIL [Suspect]
     Indication: HYPERTENSION
     Route: 048
     Dates: start: 201210
  2. SUMIAL (PROPRANOLOL HYDROCHLORIDE) [Concomitant]
  3. SIMVASTATINA (SIMVASTATIN) [Concomitant]

REACTIONS (1)
  - Hypertension [None]
